FAERS Safety Report 6772473-0 (Version None)
Quarter: 2010Q2

REPORT INFORMATION
  Report Type: 
  Country: None (occurrence: None)
  Receive Date: 20100616
  Receipt Date: 20090714
  Transmission Date: 20101027
  Serious: No
  Sender: FDA-Public Use
  Company Number: US-ASTRAZENECA-2009UW19767

PATIENT
  Sex: Female
  Weight: 54.9 kg

DRUGS (5)
  1. PULMICORT RESPULES [Suspect]
     Route: 055
  2. BUSPAR [Concomitant]
  3. ENABLEX [Concomitant]
  4. ZOLPIDEM [Concomitant]
  5. LORAZEPAM [Concomitant]

REACTIONS (2)
  - DRY MOUTH [None]
  - PAIN IN EXTREMITY [None]
